FAERS Safety Report 5847008-7 (Version None)
Quarter: 2008Q3

REPORT INFORMATION
  Report Type: 
  Country: None (occurrence: None)
  Receive Date: 20080815
  Receipt Date: 20080805
  Transmission Date: 20090109
  Serious: Yes (Disabling)
  Sender: FDA-Public Use
  Company Number: DE-PFIZER INC-2008062249

PATIENT
  Sex: Male

DRUGS (1)
  1. CABASERIL [Suspect]
     Indication: PARKINSON'S DISEASE
     Dosage: DAILY DOSE:6MG
     Route: 048

REACTIONS (4)
  - BACK PAIN [None]
  - DYSAESTHESIA [None]
  - GENITAL PAIN [None]
  - PRIAPISM [None]
